FAERS Safety Report 23996552 (Version 1)
Quarter: 2024Q2

REPORT INFORMATION
  Report Type: Report from Study
  Country: US (occurrence: US)
  Receive Date: 20240620
  Receipt Date: 20240620
  Transmission Date: 20240716
  Serious: Yes (Disabling, Other)
  Sender: FDA-Public Use
  Company Number: US-GILEAD-2024-0677875

PATIENT
  Sex: Female

DRUGS (1)
  1. AZTREONAM LYSINE [Suspect]
     Active Substance: AZTREONAM LYSINE
     Indication: Product used for unknown indication
     Dosage: INHALE THE CONTENTS OF 1 VIAL 3 TIMES DAILY
     Route: 055
     Dates: start: 20231121

REACTIONS (2)
  - Pneumonia [Unknown]
  - Illness [Unknown]
